FAERS Safety Report 9747515 (Version 1)
Quarter: 2013Q4

REPORT INFORMATION
  Report Type: Spontaneous
  Country: BR (occurrence: BR)
  Receive Date: 20131212
  Receipt Date: 20131212
  Transmission Date: 20140711
  Serious: Yes (Other)
  Sender: FDA-Public Use
  Company Number: BR-ROCHE-1317517

PATIENT
  Sex: Female
  Weight: 55 kg

DRUGS (1)
  1. RIVOTRIL [Suspect]
     Indication: PANIC DISORDER
     Route: 065

REACTIONS (2)
  - Fall [Unknown]
  - Intervertebral disc protrusion [Not Recovered/Not Resolved]
